FAERS Safety Report 4806733-7 (Version None)
Quarter: 2005Q4

REPORT INFORMATION
  Report Type: 
  Country: None (occurrence: None)
  Receive Date: 20051019
  Receipt Date: 20051013
  Transmission Date: 20060501
  Serious: Yes (Disabling)
  Sender: FDA-Public Use
  Company Number: GBWYE994821SEP05

PATIENT
  Age: 64 Year
  Sex: Female

DRUGS (2)
  1. EFFEXOR XR [Suspect]
     Indication: DEPRESSION
     Dosage: 75 MG , ORAL
     Route: 048
     Dates: start: 20050601, end: 20050829
  2. EFFEXOR [Suspect]
     Indication: DEPRESSION
     Dosage: 37.5 MG, ORAL
     Route: 048
     Dates: start: 20050830, end: 20050930

REACTIONS (7)
  - DRUG WITHDRAWAL SYNDROME [None]
  - DYSKINESIA [None]
  - ENERGY INCREASED [None]
  - EXCORIATION [None]
  - GINGIVAL PAIN [None]
  - RESTLESSNESS [None]
  - SLEEP DISORDER [None]
